FAERS Safety Report 21444623 (Version 2)
Quarter: 2022Q4

REPORT INFORMATION
  Report Type: Report from Study
  Country: CL (occurrence: CL)
  Receive Date: 20221012
  Receipt Date: 20221214
  Transmission Date: 20230113
  Serious: Yes (Other)
  Sender: FDA-Public Use
  Company Number: CL-NOVARTISPH-NVSC2021CL138508

PATIENT
  Age: 69 Year
  Sex: Male
  Weight: 100 kg

DRUGS (1)
  1. TASIGNA [Suspect]
     Active Substance: NILOTINIB
     Indication: Chronic myeloid leukaemia
     Dosage: 400 MG, BID (28 DAYS)
     Route: 048
     Dates: start: 201206

REACTIONS (14)
  - Lumbar hernia [Unknown]
  - Intervertebral disc protrusion [Unknown]
  - Diabetes mellitus [Unknown]
  - Neuropathy peripheral [Unknown]
  - Muscle spasticity [Unknown]
  - Cytogenetic analysis abnormal [Unknown]
  - COVID-19 [Unknown]
  - Illness [Unknown]
  - Wound [Recovering/Resolving]
  - Poor quality sleep [Unknown]
  - Head discomfort [Unknown]
  - Coronary artery disease [Unknown]
  - Hyperglycaemia [Unknown]
  - Palpitations [Unknown]
